FAERS Safety Report 18718449 (Version 2)
Quarter: 2021Q1

REPORT INFORMATION
  Report Type: Report from Study
  Country: US (occurrence: US)
  Receive Date: 20210108
  Receipt Date: 20210212
  Transmission Date: 20210419
  Serious: No
  Sender: FDA-Public Use
  Company Number: US-CELGENEUS-USA-20201209424

PATIENT
  Age: 67 Year
  Sex: Male
  Weight: 108 kg

DRUGS (81)
  1. ANASTROZOLE. [Concomitant]
     Active Substance: ANASTROZOLE
     Indication: SUPPLEMENTATION THERAPY
     Dosage: 1 MG X 1 X 1 DAYS
     Route: 048
  2. AZELASTINE NASAL SPRAY [Concomitant]
     Active Substance: AZELASTINE
     Indication: SEASONAL ALLERGY
     Dosage: 1 SPRAY X 1 X 1 DAYS
     Route: 055
  3. CEPHALEXIN. [Concomitant]
     Active Substance: CEPHALEXIN
     Indication: CELLULITIS
     Dosage: 250 MG X 1 X 1 DAYS
     Route: 048
  4. ENOXAPARIN [Concomitant]
     Active Substance: ENOXAPARIN
     Indication: THROMBOSIS PROPHYLAXIS
     Dosage: 100 MG/1 ML MG/ML/MIN X 1 X 12 HOURS
     Route: 058
     Dates: start: 20200829, end: 20200903
  5. FLUTICASONE NASAL SPRAY [Concomitant]
     Active Substance: FLUTICASONE
     Indication: SEASONAL ALLERGY
     Dosage: 1 SPRAY X 1 X 1 DAYS
     Route: 055
     Dates: end: 20200828
  6. LEVOTHYROXINE SODIUM. [Concomitant]
     Active Substance: LEVOTHYROXINE SODIUM
     Indication: THYROID DISORDER
     Dosage: 0.35 MG X 1 X 1 DAYS
     Route: 048
  7. LIRAGLUTIDE [Concomitant]
     Active Substance: LIRAGLUTIDE
     Indication: TYPE 2 DIABETES MELLITUS
     Dosage: 1.8 MG X 1 X 1 DAYS
     Route: 058
  8. TIOTROPIUM BROMIDE [Concomitant]
     Active Substance: TIOTROPIUM BROMIDE
     Indication: BRONCHITIS
     Dosage: 2 PUFF X 1 X 1 DAYS
     Route: 055
  9. FUROSEMIDE. [Concomitant]
     Active Substance: FUROSEMIDE
     Indication: ADVERSE EVENT
     Dosage: 40 MG X 1 X 1 DAYS
     Route: 048
     Dates: start: 20200927, end: 20201002
  10. INSULIN GLAGINE [Concomitant]
     Indication: TYPE 2 DIABETES MELLITUS
     Dosage: 12 U X 1 X 1 DAYS
     Route: 058
     Dates: start: 20200826, end: 20200827
  11. LIDOCAINE 1% [Concomitant]
     Active Substance: LIDOCAINE
     Indication: PREMEDICATION
     Dosage: 10 ML X ONCE
     Route: 058
     Dates: start: 20200911, end: 20200911
  12. LIDOCAINE 5% [Concomitant]
     Active Substance: LIDOCAINE
     Indication: ARTHRALGIA
     Dosage: 1 PATCH X 1 X 1 DAYS
     Route: 062
     Dates: start: 20200908, end: 20200914
  13. METOPROLOL TARTRATE. [Concomitant]
     Active Substance: METOPROLOL TARTRATE
     Indication: HYPERTENSION
     Dosage: 25 MG X 2 X 1 DAYS
     Route: 048
     Dates: start: 20200910, end: 20200915
  14. SPIRONOACTONE [Concomitant]
     Indication: HYPERTENSION
     Dosage: 50 MG X 1 X 1 DAYS
     Route: 048
     Dates: start: 20200828
  15. SPIRONOLACTONE. [Concomitant]
     Active Substance: SPIRONOLACTONE
     Indication: HYPERTENSION
     Dosage: 100 MG X ONCE
     Route: 048
     Dates: start: 20201002, end: 20201002
  16. TRAMADOL. [Concomitant]
     Active Substance: TRAMADOL
     Indication: ARTHRALGIA
     Dosage: 50 MG X ONCE
     Route: 048
     Dates: start: 20200908, end: 20200909
  17. CEPHALEXIN. [Concomitant]
     Active Substance: CEPHALEXIN
     Indication: ADVERSE EVENT
     Dosage: 250 MG X 1 X 1 DAYS
     Route: 048
     Dates: start: 20200825, end: 20200828
  18. HYDROXYUREA. [Concomitant]
     Active Substance: HYDROXYUREA
     Indication: MYELOFIBROSIS
     Route: 065
     Dates: start: 2007, end: 201111
  19. LENALIDOMIDE [Concomitant]
     Active Substance: LENALIDOMIDE
     Indication: MYELOFIBROSIS
     Dosage: 5 MG
     Route: 065
     Dates: start: 201111, end: 20200116
  20. MONTELUKAST [Concomitant]
     Active Substance: MONTELUKAST SODIUM
     Indication: BRONCHITIS
     Dosage: 10 MG X 1 X 1 DAYS
     Route: 048
  21. ADVAIR HFA [Concomitant]
     Active Substance: FLUTICASONE PROPIONATE\SALMETEROL XINAFOATE
     Indication: SEASONAL ALLERGY
     Dosage: 1 PUFF X 1 X 12 HOURS
     Route: 055
     Dates: start: 20200908, end: 20200915
  22. CYCLOBENZAPRINE. [Concomitant]
     Active Substance: CYCLOBENZAPRINE
     Indication: MUSCLE SPASMS
     Dosage: 10 MG X 3 X 1 DAYS
     Route: 048
     Dates: start: 20191121
  23. HYDROMORPHONE [Concomitant]
     Active Substance: HYDROMORPHONE
     Indication: ARTHRALGIA
     Dosage: 0.5 MG X ONCE
     Route: 042
     Dates: start: 20200901, end: 20200901
  24. LIDOCAINE 1% [Concomitant]
     Active Substance: LIDOCAINE
     Indication: PREMEDICATION
     Dosage: 10 ML X ONCE
     Route: 058
     Dates: start: 20200826, end: 20200826
  25. LIDOCAINE 5% [Concomitant]
     Active Substance: LIDOCAINE
     Indication: ARTHRALGIA
     Dosage: 700 MG/PATCH PATCH X 1 X 24 HOURS
     Route: 062
     Dates: start: 20200902
  26. LIDOCAINE 5% [Concomitant]
     Active Substance: LIDOCAINE
     Indication: ARTHRALGIA
     Dosage: 1 PATCH X 1 X 24 HOURS
     Route: 062
     Dates: start: 20200902, end: 20200903
  27. MAGNESIUM SULFATE. [Concomitant]
     Active Substance: MAGNESIUM SULFATE
     Indication: ELECTROLYTE SUBSTITUTION THERAPY
     Dosage: 16 MEQ/L X ONCE
     Route: 042
     Dates: start: 20200901, end: 20200901
  28. FEDRATINIB [Suspect]
     Active Substance: FEDRATINIB
     Indication: PRIMARY MYELOFIBROSIS
     Dosage: 400 MG X 1 X 1 DAYS
     Route: 048
     Dates: start: 20200310, end: 20200829
  29. BISOPROLOL FUMARATE ORAL [Concomitant]
     Indication: HYPERTENSION
     Dosage: 2.5 MG X 1 X 1 DAYS
     Route: 048
  30. CYANOCOBALAMIN. [Concomitant]
     Active Substance: CYANOCOBALAMIN
     Indication: SUPPLEMENTATION THERAPY
     Dosage: 500 MG X 1 X 1 DAYS
     Route: 048
  31. ENOXAPARIN [Concomitant]
     Active Substance: ENOXAPARIN
     Indication: THROMBOSIS PROPHYLAXIS
     Dosage: 30 MG/0.3 ML MG/ML/MIN X 2 X 1 DAYS
     Route: 058
     Dates: end: 20200828
  32. NORTRIPTYLINE [Concomitant]
     Active Substance: NORTRIPTYLINE
     Indication: PAIN
     Dosage: 50 MG X 1 X 1 DAYS
     Route: 048
     Dates: start: 20200915
  33. SODIUM BICARBONATE. [Concomitant]
     Active Substance: SODIUM BICARBONATE
     Indication: ADVERSE EVENT
     Dosage: 650 MG X 3 X 1 DAYS
     Route: 048
     Dates: start: 20200927, end: 20201002
  34. TRAMADOL. [Concomitant]
     Active Substance: TRAMADOL
     Indication: ARTHRALGIA
     Dosage: 50 MG X 1 X 6 HOURS
     Route: 048
     Dates: start: 20200826, end: 20200827
  35. TRAMADOL. [Concomitant]
     Active Substance: TRAMADOL
     Indication: ARTHRALGIA
     Dosage: 50 MG X 1 X 6 HOURS
     Route: 048
     Dates: start: 20200901, end: 20200902
  36. CEPHALEXIN. [Concomitant]
     Active Substance: CEPHALEXIN
     Indication: ADVERSE EVENT
     Dosage: 250 MG X 1 X 1 DAYS
     Route: 048
     Dates: start: 20200908, end: 20200914
  37. SYMBICORT [Concomitant]
     Active Substance: BUDESONIDE\FORMOTEROL FUMARATE DIHYDRATE
     Indication: BRONCHITIS
     Dosage: 1 PUFF X 2 X 1 DAYS
     Route: 055
  38. FUROSEMIDE. [Concomitant]
     Active Substance: FUROSEMIDE
     Indication: OEDEMA PERIPHERAL
     Dosage: 10 MG X ONCE
     Route: 042
     Dates: start: 20200902, end: 20200903
  39. INSULIN GLARGINE [Concomitant]
     Active Substance: INSULIN GLARGINE
     Indication: TYPE 2 DIABETES MELLITUS
     Dosage: 10 U X 1 X 1 DAYS
     Route: 058
     Dates: start: 20200929, end: 20201001
  40. INSULIN LISPRO [Concomitant]
     Active Substance: INSULIN LISPRO
     Indication: TYPE 2 DIABETES MELLITUS
     Dosage: 2?10 U X 3 X 1 DAYS
     Route: 058
     Dates: start: 20200925, end: 20201002
  41. MAGNESIUM PROTEIN COMPLEX [Concomitant]
     Indication: NUTRITIONAL SUPPLEMENTATION
     Dosage: 2 TABLET X ONCE
     Route: 048
     Dates: start: 20200909, end: 20200910
  42. OXYCODONE [Concomitant]
     Active Substance: OXYCODONE
     Indication: PAIN
     Dosage: 2.5 MG X 1 X 4 HOURS
     Route: 048
     Dates: start: 20200827
  43. OXYCODONE [Concomitant]
     Active Substance: OXYCODONE
     Indication: PAIN
     Dosage: 2.5 MG X 1 X 4 HOURS
     Route: 048
     Dates: start: 20200902, end: 20200903
  44. SODIUM BICARBONATE. [Concomitant]
     Active Substance: SODIUM BICARBONATE
     Indication: ELECTROLYTE SUBSTITUTION THERAPY
     Dosage: 650 MG X ONCE
     Route: 048
     Dates: start: 20200915, end: 20200915
  45. ENOXAPARIN [Concomitant]
     Active Substance: ENOXAPARIN
     Indication: THROMBOSIS PROPHYLAXIS
     Dosage: 60 MG/0.6 ML MG/ML/MIN X 1 X 12 HOURS
     Route: 058
     Dates: start: 20200904
  46. LISINOPRIL. [Concomitant]
     Active Substance: LISINOPRIL
     Indication: CHRONIC KIDNEY DISEASE
     Dosage: 2.5 MG X 1 X 1 DAYS
     Route: 048
     Dates: end: 20200602
  47. OMEGA?3 FATTY ACIDS?VITAMIN E [Concomitant]
     Indication: SUPPLEMENTATION THERAPY
     Dosage: 2000 MG X 1 X 1 DAYS
     Route: 048
  48. CHOLECALCIFEROL [Concomitant]
     Active Substance: CHOLECALCIFEROL
     Indication: VITAMIN SUPPLEMENTATION
     Dosage: 10000 U X 1 X 1 DAYS
     Route: 048
     Dates: start: 20200407
  49. FERROUS SULFATE. [Concomitant]
     Active Substance: FERROUS SULFATE
     Indication: SUPPLEMENTATION THERAPY
     Dosage: 325 MG X 1 X 1 DAYS
     Route: 048
     Dates: start: 20180723, end: 20200828
  50. INSULIN LISPRO [Concomitant]
     Active Substance: INSULIN LISPRO
     Indication: TYPE 2 DIABETES MELLITUS
     Dosage: 2 U X 3 X 1 DAYS
     Route: 058
     Dates: start: 20200826, end: 20200826
  51. IPRATROPIUM [Concomitant]
     Active Substance: IPRATROPIUM
     Indication: DYSPNOEA
     Dosage: 0.5 MG X 3 X 1 DAYS
     Route: 050
     Dates: start: 20200909, end: 20200915
  52. MAGNESIUM SULFATE IN STERILE WATER [Concomitant]
     Indication: ELECTROLYTE SUBSTITUTION THERAPY
     Dosage: 16 MEQ X ONCE
     Route: 042
     Dates: start: 20200911, end: 20200911
  53. NORTRIPTYLINE [Concomitant]
     Active Substance: NORTRIPTYLINE
     Indication: PAIN
     Dosage: 50 MG X 1 X 1 DAYS
     Route: 048
     Dates: start: 20191121, end: 20200901
  54. NORTRIPTYLINE [Concomitant]
     Active Substance: NORTRIPTYLINE
     Indication: PAIN
     Dosage: 25 MG X 1 X 1 DAYS
     Route: 048
     Dates: start: 20200902, end: 20200914
  55. POTASSIUM CHLORIDE. [Concomitant]
     Active Substance: POTASSIUM CHLORIDE
     Indication: ELECTROLYTE SUBSTITUTION THERAPY
     Dosage: 20 MG X ONCE
     Route: 042
     Dates: start: 20200901, end: 20200901
  56. SODIUM POLYSTYRENE [Concomitant]
     Active Substance: SODIUM POLYSTYRENE SULFONATE
     Indication: PROPHYLAXIS
     Dosage: 15 G X ONCE
     Route: 048
     Dates: start: 20200915, end: 20200915
  57. APIXABAN [Concomitant]
     Active Substance: APIXABAN
     Indication: UNEVALUABLE EVENT
     Dosage: 5 MG X 2 X 1 DAYS
     Route: 048
     Dates: end: 20200828
  58. POLYETHYLENE GLYCOL [Concomitant]
     Active Substance: POLYETHYLENE GLYCOLS
     Indication: CONSTIPATION PROPHYLAXIS
     Dosage: 17 G X 1 X 1 DAYS
     Route: 048
     Dates: end: 20200828
  59. ASPIRIN. [Concomitant]
     Active Substance: ASPIRIN
     Indication: ISCHAEMIC HEART DISEASE PROPHYLAXIS
     Dosage: 81 MG X 1 X 2 DAYS
     Route: 048
     Dates: start: 20200407, end: 20200828
  60. DULOXETINE. [Concomitant]
     Active Substance: DULOXETINE
     Indication: PAIN
     Dosage: 30 MG X 1 X 1 DAYS
     Route: 048
     Dates: start: 20200904
  61. INSULIN GLARGINE [Concomitant]
     Active Substance: INSULIN GLARGINE
     Indication: TYPE 2 DIABETES MELLITUS
     Dosage: 100 U/ML X 1 X 1 DAYS
     Route: 058
     Dates: start: 20200909, end: 20200914
  62. INSULIN DEGLUDEC [Concomitant]
     Active Substance: INSULIN DEGLUDEC
     Indication: TYPE 2 DIABETES MELLITUS
     Dosage: 26 U/ML X 1 X 1 DAYS
     Route: 058
  63. TESTOSTERONE CYPIONATE. [Concomitant]
     Active Substance: TESTOSTERONE CYPIONATE
     Indication: SUPPLEMENTATION THERAPY
     Dosage: 5 MG X 1 X 1 WEEKS
     Route: 030
  64. ACETAMINOPHEN. [Concomitant]
     Active Substance: ACETAMINOPHEN
     Indication: UNEVALUABLE EVENT
     Dosage: 650 MG X 1 X 6 HOURS
     Route: 048
     Dates: start: 20200831, end: 20200901
  65. CLINDAMYCIN HCL [Concomitant]
     Active Substance: CLINDAMYCIN HYDROCHLORIDE
     Indication: INFECTION PROPHYLAXIS
     Dosage: 150 MG X PRN
     Route: 048
     Dates: start: 20200407
  66. DULOXETINE. [Concomitant]
     Active Substance: DULOXETINE
     Indication: PAIN
     Dosage: 60 MG X 1 X 1 DAYS
     Route: 048
     Dates: start: 20191121, end: 20200828
  67. LIDOCAINE 1% [Concomitant]
     Active Substance: LIDOCAINE
     Indication: PREMEDICATION
     Dosage: 10 ML X ONCE
     Route: 058
     Dates: start: 20200902, end: 20200902
  68. MELATONIN [Concomitant]
     Active Substance: MELATONIN
     Indication: UNEVALUABLE EVENT
     Dosage: 5 MG X ONCE
     Route: 048
     Dates: start: 20201001, end: 20201001
  69. METOPROLOL TARTRATE. [Concomitant]
     Active Substance: METOPROLOL TARTRATE
     Indication: HYPERTENSION
     Dosage: 12.5 MG X 1 X 12 HOURS
     Route: 048
     Dates: start: 20201001, end: 20201002
  70. POTASSIUM CHLORIDE. [Concomitant]
     Active Substance: POTASSIUM CHLORIDE
     Indication: ADVERSE EVENT
     Dosage: 20 MEQ X ONCE
     Route: 048
     Dates: start: 20201001, end: 20201001
  71. PREGABALIN. [Concomitant]
     Active Substance: PREGABALIN
     Indication: UNEVALUABLE EVENT
     Dosage: 200 MG X 3 X 1 DAYS
     Route: 048
     Dates: start: 20200224, end: 20200827
  72. PREGABALIN. [Concomitant]
     Active Substance: PREGABALIN
     Indication: UNEVALUABLE EVENT
     Dosage: 100 MG X 1 X 1 DAYS
     Route: 048
     Dates: start: 20200827
  73. LIOTHYRONINE [Concomitant]
     Active Substance: LIOTHYRONINE
     Indication: THYROID DISORDER
     Dosage: 0.005 MG X 2 X 1 DAYS
     Route: 048
  74. DUONEB [Concomitant]
     Active Substance: ALBUTEROL SULFATE\IPRATROPIUM BROMIDE
     Indication: DYSPNOEA
     Dosage: 3 ML X 1 X 6 HOURS
     Route: 055
     Dates: start: 20200928, end: 20201002
  75. GUAIFENESIN. [Concomitant]
     Active Substance: GUAIFENESIN
     Indication: COUGH
     Dosage: 600 MG X 1 X 12 HOURS
     Route: 048
     Dates: start: 20200827, end: 20200828
  76. INSULIN GLARGINE [Concomitant]
     Active Substance: INSULIN GLARGINE
     Indication: TYPE 2 DIABETES MELLITUS
     Dosage: 12 U X ONCE
     Route: 058
     Dates: start: 20200830, end: 20200830
  77. IPRATROPIUM [Concomitant]
     Active Substance: IPRATROPIUM
     Indication: DYSPNOEA
     Dosage: 0.5 MG X 1 X 8 HOURS
     Route: 050
     Dates: start: 20200902, end: 20200903
  78. OXYCODONE [Concomitant]
     Active Substance: OXYCODONE
     Indication: PAIN
     Dosage: 5 MG X 1 X 8 HOURS
     Route: 048
     Dates: start: 20200213, end: 20200825
  79. PREGABALIN. [Concomitant]
     Active Substance: PREGABALIN
     Indication: UNEVALUABLE EVENT
     Dosage: 50 MG X 1 X 8 HOURS
     Route: 048
     Dates: start: 20200908, end: 20200909
  80. PYRIDOXINE [Concomitant]
     Active Substance: PYRIDOXINE
     Indication: VITAMIN SUPPLEMENTATION
     Dosage: 100 MG X 1 X 1 DAYS
     Route: 048
     Dates: start: 20200930, end: 20201002
  81. SPIRONOLACTONE. [Concomitant]
     Active Substance: SPIRONOLACTONE
     Indication: HYPERTENSION
     Dosage: 25 MG X 1 X 1 DAYS
     Route: 048
     Dates: start: 20170727, end: 20200827

REACTIONS (1)
  - Encephalopathy [Not Recovered/Not Resolved]

NARRATIVE: CASE EVENT DATE: 20200924
